FAERS Safety Report 8934542 (Version 1)
Quarter: 2012Q4

REPORT INFORMATION
  Report Type: 
  Country: US (occurrence: US)
  Receive Date: 20121129
  Receipt Date: 20121129
  Transmission Date: 20130627
  Serious: No
  Sender: FDA-Public Use
  Company Number: US-GLAXOSMITHKLINE-A0992395A

PATIENT
  Age: 82 Year
  Sex: Female

DRUGS (2)
  1. FLOVENT [Suspect]
     Indication: PRODUCT USED FOR UNKNOWN INDICATION
     Dosage: 1PUFF Per day
     Route: 055
  2. GABAPENTIN [Concomitant]

REACTIONS (2)
  - Headache [Unknown]
  - Throat irritation [Unknown]
